FAERS Safety Report 8733532 (Version 2)
Quarter: 2012Q4

REPORT INFORMATION
  Report Type: 
  Country: US (occurrence: US)
  Receive Date: 20120821
  Receipt Date: 20120921
  Transmission Date: 20130627
  Serious: Yes (Hospitalization)
  Sender: FDA-Public Use
  Company Number: US-BAYER-2012-083682

PATIENT
  Age: 31 Year
  Sex: Female
  Weight: 142.86 kg

DRUGS (33)
  1. YASMIN [Suspect]
     Indication: CONTRACEPTION
     Dosage: UNK
     Dates: start: 20110227, end: 20120206
  2. OCELLA [Suspect]
     Indication: CONTRACEPTION
     Dosage: UNK
     Dates: start: 20100504, end: 20100920
  3. YAZ [Suspect]
     Indication: CONTRACEPTION
     Dosage: UNK
     Dates: start: 20120206
  4. SINGULAIR [Concomitant]
     Indication: ASTHMA
     Dosage: 10 mg, QD
     Route: 048
     Dates: start: 20101017
  5. LEXAPRO [Concomitant]
     Indication: DEPRESSION
     Dosage: UNK
     Dates: start: 20101213
  6. LEXAPRO [Concomitant]
     Indication: DEPRESSION
     Dosage: 10 mg, UNK
  7. LISINOPRIL [Concomitant]
     Indication: HYPERTENSION
     Dosage: 10 mg, QD
     Route: 048
     Dates: start: 20120112
  8. LISINOPRIL [Concomitant]
     Indication: HYPERTENSION
     Dosage: 20 mg, UNK
     Route: 048
     Dates: start: 20120112
  9. VALTREX [Concomitant]
     Dosage: 1 gm tablet  BID as needed
     Route: 048
  10. XYZAL [Concomitant]
     Dosage: 5 mg, daily
     Route: 048
  11. PROMETHAZINE HYDROCHLORIDE [Concomitant]
     Indication: NAUSEA
     Dosage: 1tab as needed every 6 hours
  12. TRAMADOL HYDROCHLORIDE [Concomitant]
     Dosage: 50 mg, 2 times daily as needed
     Route: 048
  13. CELEBREX [Concomitant]
     Dosage: 200 mg, daily
     Route: 048
  14. NASONEX [Concomitant]
     Dosage: 50 ?g, susp 2 spray each nare once daily
     Route: 045
  15. ALBUTEROL [Concomitant]
     Dosage: 90 ?g, 1- 2 puffs as directed
  16. AMOXICILLIN W/CLAVULANIC ACID [Concomitant]
     Dosage: 875 mg, BID
     Route: 048
  17. VENTOLIN INHALER [Concomitant]
     Dosage: 2 puffs 4-6 hours as needed
  18. ASMANEX [Concomitant]
     Dosage: 1 puff at night
  19. DICYCLOMINE [Concomitant]
     Dosage: 10 mg, three times a day as needed
     Route: 048
  20. FLUVIRIN [Concomitant]
     Dosage: 0.5 ml, as directed
  21. MECLIZINE [Concomitant]
     Indication: DIZZINESS
     Dosage: 25 mg, three times a day as needed
  22. FLUOCINONIDE [Concomitant]
     Indication: RASH
     Dosage: 0.05 %, UNK Dispensed 24-Aug-2011
     Route: 061
  23. VALACICLOVIR [Concomitant]
     Dosage: 1 gm twice daily as needed, Dispensed 19-Sep-2011
     Route: 048
  24. LOCOID [Concomitant]
     Dosage: 0.1 %, UNK Dispensed 30-Aug-2011 - 21-Sep-2011
     Route: 048
  25. LEVOCETIRIZINE [Concomitant]
     Dosage: 5 mg, QD Dispensed 24-May-2011 to 13-Oct-2011
     Route: 048
  26. PRISTIQ [Concomitant]
     Dosage: 50 mg, QD Dispensed 08-Jun-2011 to 12-Mar-2012
  27. DESVENLAFAXINE SUCCINATE [Concomitant]
     Dosage: 50 mg, QD
     Route: 048
  28. ALEVE [Concomitant]
  29. EPSOM SALTS [Concomitant]
  30. NEXIUM [Concomitant]
     Indication: NAUSEA
  31. ZOFRAN [Concomitant]
     Indication: NAUSEA
  32. SYMBICORT [Concomitant]
  33. ONDANSETRON [Concomitant]

REACTIONS (11)
  - Deep vein thrombosis [Recovered/Resolved]
  - Pulmonary embolism [None]
  - Cholecystectomy [None]
  - Cholelithiasis [None]
  - Injury [None]
  - Pain [None]
  - Pain [Recovered/Resolved]
  - Pain in extremity [Recovered/Resolved]
  - Oedema peripheral [Recovered/Resolved]
  - Chest pain [None]
  - Abdominal pain [None]
